FAERS Safety Report 14572368 (Version 4)
Quarter: 2018Q4

REPORT INFORMATION
  Report Type: Spontaneous
  Country: NL (occurrence: NL)
  Receive Date: 20180226
  Receipt Date: 20181127
  Transmission Date: 20190204
  Serious: Yes (Other)
  Sender: FDA-Public Use
  Company Number: NL-AMGEN-NLDSP2018024758

PATIENT
  Age: 24 Year
  Sex: Female

DRUGS (6)
  1. IMLYGIC [Suspect]
     Active Substance: TALIMOGENE LAHERPAREPVEC
     Dosage: UNK (10^8)
     Route: 036
     Dates: start: 20170922
  2. IMLYGIC [Suspect]
     Active Substance: TALIMOGENE LAHERPAREPVEC
     Indication: MALIGNANT MELANOMA STAGE III
     Dosage: 4CC 1/2 WEEKS (10^6)
     Route: 036
     Dates: start: 20170804
  3. IMLYGIC [Suspect]
     Active Substance: TALIMOGENE LAHERPAREPVEC
     Dosage: UNK (4CC/VISIT (EXCEPT LAST 3 VISITS 3CC) (10^8))
     Route: 036
     Dates: start: 20171013
  4. IMLYGIC [Suspect]
     Active Substance: TALIMOGENE LAHERPAREPVEC
     Dosage: UNK (4CC/VISIT (10^8))
     Route: 036
     Dates: start: 20171027, end: 20180209
  5. IMLYGIC [Suspect]
     Active Substance: TALIMOGENE LAHERPAREPVEC
     Dosage: UNK (10^8)
     Route: 036
     Dates: start: 20170825, end: 20170908
  6. IMLYGIC [Suspect]
     Active Substance: TALIMOGENE LAHERPAREPVEC
     Dosage: UNK
     Route: 036
     Dates: start: 2018

REACTIONS (6)
  - Therapy partial responder [Unknown]
  - Dermatitis herpetiformis [Recovering/Resolving]
  - Malignant neoplasm progression [Unknown]
  - Stasis dermatitis [Recovering/Resolving]
  - Impaired healing [Unknown]
  - Injection site necrosis [Not Recovered/Not Resolved]

NARRATIVE: CASE EVENT DATE: 20171208
